FAERS Safety Report 12657063 (Version 1)
Quarter: 2016Q3

REPORT INFORMATION
  Report Type: Spontaneous
  Country: US (occurrence: US)
  Receive Date: 20160816
  Receipt Date: 20160816
  Transmission Date: 20161109
  Serious: No
  Sender: FDA-Public Use
  Company Number: US-PERRIGO-16US017304

PATIENT
  Sex: Male

DRUGS (4)
  1. LORATADINE. [Suspect]
     Active Substance: LORATADINE
     Indication: SEASONAL ALLERGY
     Dosage: 10 MG, QD
     Route: 048
     Dates: start: 2015
  2. LORATADINE. [Suspect]
     Active Substance: LORATADINE
     Indication: OROPHARYNGEAL PAIN
  3. LORATADINE. [Suspect]
     Active Substance: LORATADINE
     Indication: PYREXIA
  4. LORATADINE. [Suspect]
     Active Substance: LORATADINE
     Indication: LACRIMATION INCREASED

REACTIONS (2)
  - Off label use [Not Recovered/Not Resolved]
  - Amnesia [Not Recovered/Not Resolved]

NARRATIVE: CASE EVENT DATE: 2015
